FAERS Safety Report 6378989-3 (Version None)
Quarter: 2009Q3

REPORT INFORMATION
  Report Type: 
  Country: None (occurrence: None)
  Receive Date: 20090928
  Receipt Date: 20090916
  Transmission Date: 20100115
  Serious: Yes (Hospitalization)
  Sender: FDA-Public Use
  Company Number: PHHY2009FR38108

PATIENT
  Sex: Female
  Weight: 52 kg

DRUGS (2)
  1. ACLASTA [Suspect]
     Indication: OSTEOPOROSIS POSTMENOPAUSAL
     Dosage: UNK
     Dates: start: 20090906
  2. FIXICAL VITAMINE D3 [Concomitant]
     Dosage: 1 DF DAILY
     Route: 048
     Dates: start: 20090101

REACTIONS (5)
  - ABDOMINAL PAIN [None]
  - FLATULENCE [None]
  - HEADACHE [None]
  - MUSCLE SPASMS [None]
  - PYREXIA [None]
